APPROVED DRUG PRODUCT: FLUCONAZOLE IN SODIUM CHLORIDE 0.9% IN PLASTIC CONTAINER
Active Ingredient: FLUCONAZOLE
Strength: 200MG/100ML (2MG/ML)
Dosage Form/Route: INJECTABLE;INJECTION
Application: A076837 | Product #001
Applicant: DR REDDYS LABORATORIES LTD
Approved: Jan 13, 2005 | RLD: No | RS: No | Type: DISCN